FAERS Safety Report 6876459-7 (Version None)
Quarter: 2010Q3

REPORT INFORMATION
  Report Type: 
  Country: None (occurrence: None)
  Receive Date: 20100727
  Receipt Date: 20100716
  Transmission Date: 20110219
  Serious: Yes (Hospitalization)
  Sender: FDA-Public Use
  Company Number: JP-PFIZER INC-2005051753

PATIENT
  Age: 6 Year
  Sex: Female
  Weight: 14.14 kg

DRUGS (3)
  1. SOMATROPIN [Suspect]
     Indication: SMALL FOR DATES BABY
     Dosage: 0.7 MG, 1X/DAY
     Dates: start: 20030508, end: 20041112
  2. SOMATROPIN [Suspect]
     Dosage: 0.9 MG, 1X/DAY
     Dates: start: 20041113, end: 20050328
  3. SOMATROPIN [Suspect]
     Dosage: 0.9 MG, 1X/DAY
     Dates: start: 20050401

REACTIONS (2)
  - OTITIS MEDIA [None]
  - TONSILLAR DISORDER [None]
